FAERS Safety Report 6130296-X (Version None)
Quarter: 2009Q1

REPORT INFORMATION
  Report Type: 
  Country: None (occurrence: None)
  Receive Date: 20090324
  Receipt Date: 20090312
  Transmission Date: 20090719
  Serious: Yes (Other)
  Sender: FDA-Public Use
  Company Number: ES-PFIZER INC-2009182413

PATIENT

DRUGS (1)
  1. NEURONTIN [Suspect]
     Indication: NEURALGIA
     Dosage: FREQUENCY: EVERY DAY
     Route: 048
     Dates: start: 20081229, end: 20090122

REACTIONS (1)
  - LIVER INJURY [None]
